FAERS Safety Report 9366337 (Version 1)
Quarter: 2013Q2

REPORT INFORMATION
  Report Type: Spontaneous
  Country: US (occurrence: US)
  Receive Date: 20130625
  Receipt Date: 20130625
  Transmission Date: 20140414
  Serious: No
  Sender: FDA-Public Use
  Company Number: US-GLAXOSMITHKLINE-A1001286A

PATIENT
  Age: 59 Year
  Sex: Female

DRUGS (1)
  1. VERAMYST [Suspect]
     Route: 045

REACTIONS (3)
  - Headache [Unknown]
  - Vision blurred [Unknown]
  - Dry throat [Unknown]
